FAERS Safety Report 12473789 (Version 4)
Quarter: 2018Q1

REPORT INFORMATION
  Report Type: Report from Study
  Country: KR (occurrence: KR)
  Receive Date: 20160616
  Receipt Date: 20180306
  Transmission Date: 20180508
  Serious: Yes (Death, Hospitalization)
  Sender: FDA-Public Use
  Company Number: KR-EISAI MEDICAL RESEARCH-EC-2016-017633

PATIENT
  Age: 77 Year
  Sex: Female
  Weight: 57.3 kg

DRUGS (5)
  1. HALAVEN [Suspect]
     Active Substance: ERIBULIN MESYLATE
     Indication: BREAST CANCER METASTATIC
     Route: 041
     Dates: start: 20140814, end: 20140926
  2. ZOMETA [Concomitant]
     Active Substance: ZOLEDRONIC ACID
  3. DUROGESIC [Concomitant]
     Active Substance: FENTANYL
  4. MEPEM [Concomitant]
     Active Substance: MEROPENEM
  5. TYLENOL [Concomitant]
     Active Substance: ACETAMINOPHEN

REACTIONS (3)
  - Pneumonia [Fatal]
  - Myalgia [Not Recovered/Not Resolved]
  - Malignant neoplasm progression [Not Recovered/Not Resolved]

NARRATIVE: CASE EVENT DATE: 20140924
